FAERS Safety Report 12696913 (Version 1)
Quarter: 2016Q3

REPORT INFORMATION
  Report Type: Spontaneous
  Country: GH (occurrence: None)
  Receive Date: 20160829
  Receipt Date: 20160829
  Transmission Date: 20161109
  Serious: Yes (Life-Threatening)
  Sender: FDA-Public Use
  Company Number: None

PATIENT
  Age: 20 Year
  Sex: Female
  Weight: 35 kg

DRUGS (1)
  1. MARTIN^S LIVER SALT [Suspect]
     Active Substance: ANHYDROUS CITRIC ACID\BICARBONATE ION\MAGNESIUM CATION
     Indication: ABDOMINAL DISCOMFORT
     Dosage: IN THE MORNING TAKEN BY MOUTH
     Route: 048
     Dates: end: 20160822

REACTIONS (3)
  - Faeces discoloured [None]
  - Haemoptysis [None]
  - Abdominal pain upper [None]

NARRATIVE: CASE EVENT DATE: 20160822
